FAERS Safety Report 5054065-7 (Version None)
Quarter: 2006Q3

REPORT INFORMATION
  Report Type: 
  Country: None (occurrence: None)
  Receive Date: 20060713
  Receipt Date: 20060627
  Transmission Date: 20061208
  Serious: Yes (Hospitalization)
  Sender: FDA-Public Use
  Company Number: 223204

PATIENT
  Age: 44 Year
  Sex: Female
  Weight: 39.2 kg

DRUGS (9)
  1. AVASTIN [Suspect]
     Indication: COLORECTAL CANCER METASTATIC
     Dosage: 191MG, Q2W, INTRAVENOUS
     Route: 042
     Dates: start: 20051104, end: 20060615
  2. IRINOTECAN HCL [Suspect]
     Indication: COLORECTAL CANCER METASTATIC
     Dosage: 170 MG, Q2W, INTRAVENOUS
     Route: 042
     Dates: start: 20051104
  3. FLUOROURACIL [Suspect]
     Indication: COLORECTAL CANCER METASTATIC
     Dosage: 2270 MG, Q2W, INTRAVENOUS
     Route: 042
     Dates: start: 20051104
  4. LEUCOVORIN (LEUCOVORIN CALCIIUM) [Suspect]
     Indication: COLORECTAL CANCER METASTATIC
     Dosage: 190 MG, Q2W, INTRAVENOUS
     Route: 042
     Dates: start: 20051104
  5. TRANSAMIN (TRANEXAMIC ACID) [Concomitant]
  6. FERROUS FUMARATE [Concomitant]
  7. LIVER EXTRACT (LIVER EXTRACT) [Concomitant]
  8. VITAMIN B (VITAMIN NOS) [Concomitant]
  9. IMOVANE (ZOPICLONE) [Concomitant]

REACTIONS (1)
  - MENORRHAGIA [None]
